FAERS Safety Report 4998239-X (Version None)
Quarter: 2006Q2

REPORT INFORMATION
  Report Type: 
  Country: None (occurrence: None)
  Receive Date: 20060508
  Receipt Date: 20060425
  Transmission Date: 20061013
  Serious: Yes (Other)
  Sender: FDA-Public Use
  Company Number: 2006056763

PATIENT
  Age: 42 Year
  Sex: Male

DRUGS (5)
  1. SERTRALINE [Suspect]
     Indication: BIPOLAR I DISORDER
  2. LITHIUM (LITHIUM) [Suspect]
     Indication: BIPOLAR I DISORDER
     Dosage: 1200 MG (1 D),
  3. TRAZODONE HCL [Suspect]
     Indication: INSOMNIA
     Dosage: 300 MG (1 D),
  4. TRIAZOLAM [Suspect]
     Indication: INSOMNIA
     Dosage: 0.25 MG (1 D),
  5. BUPROPION HCL [Suspect]
     Indication: BIPOLAR I DISORDER
     Dosage: 450 MG (150 MG, 3 IN 1 D),

REACTIONS (13)
  - DEPRESSION [None]
  - DISEASE RECURRENCE [None]
  - DISTURBANCE IN ATTENTION [None]
  - DRUG EFFECT DECREASED [None]
  - DRUG INEFFECTIVE [None]
  - FEELING OF DESPAIR [None]
  - INSOMNIA [None]
  - IRRITABILITY [None]
  - LETHARGY [None]
  - PERFORMANCE STATUS DECREASED [None]
  - SEDATION [None]
  - SOMNOLENCE [None]
  - SUICIDAL IDEATION [None]
